FAERS Safety Report 8601643-1 (Version None)
Quarter: 2012Q3

REPORT INFORMATION
  Report Type: 
  Country: None (occurrence: None)
  Receive Date: 20120806
  Receipt Date: 20120724
  Transmission Date: 20120928
  Serious: Yes (Hospitalization, Disabling)
  Sender: FDA-Public Use
  Company Number: 2012P1049940

PATIENT
  Age: 65 Year
  Sex: Female
  Weight: 68.4932 kg

DRUGS (5)
  1. RESTORIL [Suspect]
     Indication: INSOMNIA
     Dosage: 15 MG; 30 MG
     Dates: start: 20120101, end: 20120101
  2. RESTORIL [Suspect]
     Indication: INSOMNIA
     Dosage: 15 MG; 30 MG
     Dates: start: 20120101, end: 20120101
  3. METHADONE HCL [Suspect]
     Indication: PAIN
  4. SECONAL SODIUM [Suspect]
     Indication: INSOMNIA
     Dosage: 1 CAPSULE;QOD
     Dates: start: 19670101, end: 19730101
  5. AMBIEN [Suspect]
     Indication: INSOMNIA
     Dosage: 10 MG;HS
     Dates: start: 20120701, end: 20120701

REACTIONS (14)
  - CAESAREAN SECTION [None]
  - VICTIM OF ABUSE [None]
  - CONTUSION [None]
  - MATERNAL EXPOSURE DURING PREGNANCY [None]
  - LEGAL PROBLEM [None]
  - FALL [None]
  - RHEUMATOID ARTHRITIS [None]
  - HEPATITIS C [None]
  - POST-TRAUMATIC STRESS DISORDER [None]
  - RETINAL VEIN OCCLUSION [None]
  - NEUROPATHY PERIPHERAL [None]
  - BLINDNESS UNILATERAL [None]
  - CRYOGLOBULINAEMIA [None]
  - BALANCE DISORDER [None]
